FAERS Safety Report 21885915 (Version 1)
Quarter: 2023Q1

REPORT INFORMATION
  Report Type: Spontaneous
  Country: US (occurrence: None)
  Receive Date: 20230118
  Receipt Date: 20230118
  Transmission Date: 20230418
  Serious: Yes (Hospitalization)
  Sender: FDA-Public Use
  Company Number: None

PATIENT
  Sex: Female

DRUGS (1)
  1. OCTREOTIDE [Suspect]
     Active Substance: OCTREOTIDE
     Indication: Gastrointestinal haemorrhage
     Dosage: OTHER STRENGTH : 100MCG/ML, 1ML;?OTHER QUANTITY : 100MCG/ML;?FREQUENCY : 3 TIMES A DAY;?
     Route: 058
     Dates: start: 20221214

REACTIONS (2)
  - Haemorrhage [None]
  - Transfusion [None]
